FAERS Safety Report 25046315 (Version 1)
Quarter: 2025Q1

REPORT INFORMATION
  Report Type: Spontaneous
  Country: US (occurrence: US)
  Receive Date: 20250306
  Receipt Date: 20250306
  Transmission Date: 20250409
  Serious: No
  Sender: BAYER HEALTHCARE PHARMACEUTICALS INC.
  Company Number: US-BAYER-2025A029234

PATIENT
  Sex: Female

DRUGS (1)
  1. KERENDIA [Suspect]
     Active Substance: FINERENONE

REACTIONS (4)
  - Bone pain [None]
  - Musculoskeletal stiffness [None]
  - Arthritis [None]
  - Paraesthesia [None]

NARRATIVE: CASE EVENT DATE: 20250228
